FAERS Safety Report 8957690 (Version 3)
Quarter: 2012Q4

REPORT INFORMATION
  Report Type: 
  Country: JP (occurrence: JP)
  Receive Date: 20121210
  Receipt Date: 20121227
  Transmission Date: 20130627
  Serious: Yes (Life-Threatening, Hospitalization, Other)
  Sender: FDA-Public Use
  Company Number: JP-PFIZER INC-2012308767

PATIENT
  Age: 46 Year
  Sex: Female

DRUGS (9)
  1. LYRICA [Suspect]
     Indication: NEUROPATHIC PAIN
     Dosage: 75 mg, daily
     Route: 048
     Dates: start: 20121206, end: 201212
  2. LYRICA [Suspect]
     Indication: LUMBAR DISC HERNIATION
  3. CELECOX [Concomitant]
     Dosage: 100 mg, 2x/day
     Route: 048
     Dates: start: 20121206
  4. REBAMIPIDE [Concomitant]
     Dosage: 100 mg, 2x/day
     Route: 048
     Dates: start: 20121206
  5. TAKEPRON [Concomitant]
     Dosage: 15 mg, 1x/day
     Route: 048
     Dates: start: 20121206
  6. SELTOUCH PAP [Concomitant]
     Dosage: 70 mg, 2x/day
     Route: 062
     Dates: start: 20121206
  7. ISOTONIC SODIUM CHLORIDE [Concomitant]
     Dosage: UNK
     Route: 042
     Dates: start: 20121206
  8. NEUROTROPIN [Concomitant]
     Dosage: UNK
     Route: 042
     Dates: start: 20121206
  9. VITAMIN B12 [Concomitant]
     Dosage: UNK
     Route: 042
     Dates: start: 20121206

REACTIONS (3)
  - Pallor [Recovered/Resolved]
  - Dizziness [Recovered/Resolved]
  - Depressed level of consciousness [Recovered/Resolved]
